FAERS Safety Report 8540526-2 (Version None)
Quarter: 2012Q3

REPORT INFORMATION
  Report Type: 
  Country: None (occurrence: None)
  Receive Date: 20120726
  Receipt Date: 20110802
  Transmission Date: 20120928
  Serious: No
  Sender: FDA-Public Use
  Company Number: US-ASTRAZENECA-2011SE46486

PATIENT
  Sex: Female

DRUGS (8)
  1. SEROQUEL [Suspect]
     Indication: SLEEP DISORDER
     Route: 048
  2. CELEXA [Concomitant]
  3. DEPAKOTE [Concomitant]
  4. NAMENDA [Concomitant]
  5. XLAN [Concomitant]
  6. KEPPRA [Concomitant]
  7. LEVOTHYROXINE SODIUM [Concomitant]
  8. EFFEXOR [Concomitant]

REACTIONS (3)
  - AGITATION [None]
  - OFF LABEL USE [None]
  - HALLUCINATION [None]
